FAERS Safety Report 4851389-0 (Version None)
Quarter: 2005Q4

REPORT INFORMATION
  Report Type: 
  Country: None (occurrence: None)
  Receive Date: 20051212
  Receipt Date: 20051201
  Transmission Date: 20060501
  Serious: Yes (Other)
  Sender: FDA-Public Use
  Company Number: PHBS2005JP17966

PATIENT

DRUGS (5)
  1. ALEVIATIN [Concomitant]
  2. LIPOVAS [Concomitant]
     Route: 048
  3. CEROCRAL [Concomitant]
     Route: 048
  4. DIOVAN [Suspect]
     Route: 048
  5. ASPIRIN [Concomitant]
     Route: 048

REACTIONS (3)
  - ASTHENIA [None]
  - BEDRIDDEN [None]
  - HYPOAESTHESIA [None]
